FAERS Safety Report 16214780 (Version 1)
Quarter: 2019Q2

REPORT INFORMATION
  Report Type: Spontaneous
  Country: US (occurrence: US)
  Receive Date: 20190314
  Receipt Date: 20190314
  Transmission Date: 20190711
  Serious: Yes (Hospitalization)
  Sender: FDA-Public Use
  Company Number: None

PATIENT
  Age: 39 Year
  Sex: Female

DRUGS (9)
  1. POTASSIUM CHLORIDE. [Concomitant]
     Active Substance: POTASSIUM CHLORIDE
  2. ACETAMINOPHEN. [Concomitant]
     Active Substance: ACETAMINOPHEN
  3. CAFFEINE-SODIUM BENZOATE [Concomitant]
  4. VANCOMYCIN [Concomitant]
     Active Substance: VANCOMYCIN
  5. CAFFEINE. [Concomitant]
     Active Substance: CAFFEINE
  6. YESCARTA [Suspect]
     Active Substance: AXICABTAGENE CILOLEUCEL
     Indication: DIFFUSE LARGE B-CELL LYMPHOMA
     Dosage: 2X10^8 CELLS/KG ONCE INTRAVENOUS?
     Route: 042
     Dates: start: 20181210
  7. IOHEXOL [Concomitant]
     Active Substance: IOHEXOL
  8. NACI [Concomitant]
     Active Substance: SODIUM CHLORIDE
  9. YESCARTA [Suspect]
     Active Substance: AXICABTAGENE CILOLEUCEL
     Indication: NON-HODGKIN^S LYMPHOMA
     Dosage: 2X10^8 CELLS/KG ONCE INTRAVENOUS?
     Route: 042
     Dates: start: 20181210

REACTIONS (4)
  - Cytokine release syndrome [None]
  - Corynebacterium test positive [None]
  - Device related infection [None]
  - Neurotoxicity [None]

NARRATIVE: CASE EVENT DATE: 20181218
